FAERS Safety Report 8331703-4 (Version None)
Quarter: 2012Q2

REPORT INFORMATION
  Report Type: 
  Country: None (occurrence: None)
  Receive Date: 20120502
  Receipt Date: 20110502
  Transmission Date: 20120825
  Serious: No
  Sender: FDA-Public Use
  Company Number: US-ASTRAZENECA-2011SE25341

PATIENT
  Age: 64 Year
  Sex: Male

DRUGS (2)
  1. STEROIDS [Suspect]
     Route: 065
  2. ENTOCORT EC [Suspect]
     Indication: COLITIS MICROSCOPIC
     Route: 048

REACTIONS (5)
  - CATARACT [None]
  - INCREASED TENDENCY TO BRUISE [None]
  - CATARACT OPERATION [None]
  - OEDEMA PERIPHERAL [None]
  - JOINT SWELLING [None]
